FAERS Safety Report 13841278 (Version 1)
Quarter: 2017Q3

REPORT INFORMATION
  Report Type: Spontaneous
  Country: US (occurrence: US)
  Receive Date: 20170807
  Receipt Date: 20170807
  Transmission Date: 20171127
  Serious: No
  Sender: FDA-Public Use
  Company Number: US-BIOGEN-2017BI00440025

PATIENT
  Sex: Female

DRUGS (1)
  1. TECFIDERA [Suspect]
     Active Substance: DIMETHYL FUMARATE
     Indication: MULTIPLE SCLEROSIS
     Route: 065
     Dates: start: 20170414

REACTIONS (6)
  - Genital burning sensation [Unknown]
  - Throat irritation [Unknown]
  - Burning sensation [Unknown]
  - Flushing [Unknown]
  - Joint warmth [Unknown]
  - Paraesthesia [Unknown]
